FAERS Safety Report 6132762-X (Version None)
Quarter: 2009Q1

REPORT INFORMATION
  Report Type: 
  Country: None (occurrence: None)
  Receive Date: 20090326
  Receipt Date: 20090323
  Transmission Date: 20090719
  Serious: Yes (Hospitalization)
  Sender: FDA-Public Use
  Company Number: TW-TEVA-187373ISR

PATIENT
  Age: 78 Year
  Sex: Male
  Weight: 89.5 kg

DRUGS (8)
  1. CARBOPLATIN [Suspect]
     Indication: NON-SMALL CELL LUNG CANCER
     Route: 042
     Dates: start: 20090119
  2. PACLITAXEL [Suspect]
     Indication: NON-SMALL CELL LUNG CANCER
     Route: 042
     Dates: start: 20090119
  3. CP-751,871 [Suspect]
     Indication: NON-SMALL CELL LUNG CANCER
     Route: 042
     Dates: start: 20090119, end: 20090211
  4. BETAMETHASONE [Concomitant]
     Dates: start: 20090120
  5. METOCLOPRAMIDE HYDROCHLORIDE [Concomitant]
     Dates: start: 20090120, end: 20090203
  6. LOPERAMIDE HCL [Concomitant]
     Dates: start: 20090120, end: 20090123
  7. FEXOFENADINE [Concomitant]
     Dates: start: 20090120, end: 20090123
  8. CALAMINE [Concomitant]
     Dates: start: 20090120, end: 20090120

REACTIONS (1)
  - CELLULITIS [None]
